FAERS Safety Report 10491278 (Version 1)
Quarter: 2014Q4

REPORT INFORMATION
  Report Type: Spontaneous
  Country: US (occurrence: US)
  Receive Date: 20141002
  Receipt Date: 20141002
  Transmission Date: 20150528
  Serious: No
  Sender: FDA-Public Use
  Company Number: US-GLAXOSMITHKLINE-A1050457A

PATIENT
  Age: 55 Year
  Sex: Female

DRUGS (9)
  1. SLEEPING MEDICATION [Concomitant]
  2. UNKNOWN FOR ANXIETY [Concomitant]
  3. BLOOD PRESSURE MEDICATION [Concomitant]
     Active Substance: UNSPECIFIED INGREDIENT
  4. CELEBREX [Concomitant]
     Active Substance: CELECOXIB
  5. ADVAIR HFA [Suspect]
     Active Substance: FLUTICASONE PROPIONATE\SALMETEROL XINAFOATE
     Indication: ASTHMA
     Dosage: 1PUFF TWICE PER DAY
     Route: 055
     Dates: start: 2011, end: 2012
  6. IBUPROFEN. [Concomitant]
     Active Substance: IBUPROFEN
  7. SULFASALAZINE. [Concomitant]
     Active Substance: SULFASALAZINE
  8. CLARITIN [Concomitant]
     Active Substance: LORATADINE
     Indication: PRURITUS
  9. VENTOLIN [Suspect]
     Active Substance: ALBUTEROL SULFATE
     Indication: ASTHMA
     Dosage: 1PUFF AS REQUIRED
     Route: 055
     Dates: start: 20130101

REACTIONS (2)
  - Drug administration error [Unknown]
  - Product quality issue [Unknown]
